FAERS Safety Report 6217998-1 (Version None)
Quarter: 2009Q2

REPORT INFORMATION
  Report Type: 
  Country: None (occurrence: None)
  Receive Date: 20090604
  Receipt Date: 20090604
  Transmission Date: 20091009
  Serious: No
  Sender: FDA-Public Use
  Company Number: None

PATIENT
  Age: 76 Year
  Sex: Male

DRUGS (2)
  1. OMEPRAZOLE [Suspect]
     Indication: GASTRIC PH DECREASED
     Dosage: 1 CAPSULE ONCE DAILY PO
     Route: 048
     Dates: start: 20090326, end: 20090603
  2. OMEPRAZOLE [Suspect]

REACTIONS (1)
  - DRUG INEFFECTIVE [None]
